FAERS Safety Report 11763204 (Version 1)
Quarter: 2015Q4

REPORT INFORMATION
  Report Type: Spontaneous
  Country: US (occurrence: US)
  Receive Date: 20151120
  Receipt Date: 20151120
  Transmission Date: 20160304
  Serious: No
  Sender: FDA-Public Use
  Company Number: US-ELI_LILLY_AND_COMPANY-US201303001937

PATIENT
  Sex: Female

DRUGS (2)
  1. FORTEO [Suspect]
     Active Substance: TERIPARATIDE
     Indication: OSTEOPOROSIS
     Dosage: UNK UNK, QD
  2. FORTEO [Suspect]
     Active Substance: TERIPARATIDE
     Dosage: UNK, QD
     Route: 065

REACTIONS (8)
  - Hypersensitivity [Unknown]
  - Somnolence [Unknown]
  - Peripheral swelling [Unknown]
  - Eye swelling [Unknown]
  - Nausea [Unknown]
  - Abdominal distension [Unknown]
  - Middle insomnia [Unknown]
  - Pain [Unknown]
